FAERS Safety Report 19488912 (Version 1)
Quarter: 2021Q3

REPORT INFORMATION
  Report Type: Spontaneous
  Country: GB (occurrence: GB)
  Receive Date: 20210702
  Receipt Date: 20210702
  Transmission Date: 20211014
  Serious: Yes (Other)
  Sender: FDA-Public Use
  Company Number: GB-ALLERGAN-2124502US

PATIENT
  Sex: Female
  Weight: 74 kg

DRUGS (4)
  1. DIAZEPAM. [Concomitant]
     Active Substance: DIAZEPAM
     Indication: SOCIAL ANXIETY DISORDER
     Dosage: 2 MG AS NECESSARY (UP TO 2 TIMES DAILY)
     Route: 048
  2. CARIPRAZINE HCL ? BP [Suspect]
     Active Substance: CARIPRAZINE HYDROCHLORIDE
     Indication: SCHIZOAFFECTIVE DISORDER
     Dosage: 3 MG, QD AT TEA TIME
     Dates: start: 20190912
  3. SODIUM VALPROATE [Concomitant]
     Active Substance: VALPROATE SODIUM
     Indication: SOCIAL ANXIETY DISORDER
  4. LITHIUM. [Concomitant]
     Active Substance: LITHIUM
     Indication: SCHIZOAFFECTIVE DISORDER

REACTIONS (4)
  - Product use in unapproved indication [Unknown]
  - Hemiparesis [Recovered/Resolved]
  - Thyroxine free increased [Unknown]
  - Cerebral atrophy [Unknown]

NARRATIVE: CASE EVENT DATE: 20200808
